FAERS Safety Report 11207940 (Version 1)
Quarter: 2015Q2

REPORT INFORMATION
  Report Type: Spontaneous
  Country: US (occurrence: None)
  Receive Date: 20150619
  Receipt Date: 20150619
  Transmission Date: 20150821
  Serious: Yes (Disabling, Other)
  Sender: FDA-Public Use
  Company Number: 2015-10986

PATIENT
  Age: 88 Year

DRUGS (1)
  1. EYLEA [Suspect]
     Active Substance: AFLIBERCEPT
     Indication: PRODUCT USED FOR UNKNOWN INDICATION
     Route: 031
     Dates: start: 20120417

REACTIONS (5)
  - Blindness [None]
  - Intraocular pressure decreased [None]
  - Endophthalmitis [None]
  - Retinal detachment [None]
  - Corneal disorder [None]

NARRATIVE: CASE EVENT DATE: 20150325
